FAERS Safety Report 9576898 (Version 1)
Quarter: 2013Q4

REPORT INFORMATION
  Report Type: Spontaneous
  Country: US (occurrence: US)
  Receive Date: 20131001
  Receipt Date: 20131001
  Transmission Date: 20140711
  Serious: No
  Sender: FDA-Public Use
  Company Number: US-AMGEN-USASP2013005128

PATIENT
  Sex: Female

DRUGS (9)
  1. ENBREL [Suspect]
     Indication: RHEUMATOID ARTHRITIS
     Dosage: 50 MG, QWK
  2. METHOTREXATE [Concomitant]
     Dosage: 2.5 MG, UNK
  3. HYZAAR [Concomitant]
     Dosage: 100-12.5
  4. PREMARIN [Concomitant]
     Dosage: 0.3 MG, UNK
  5. NORVASC [Concomitant]
     Dosage: 2.5 MG, UNK
  6. SYNTHROID [Concomitant]
     Dosage: 100 MUG, UNK
  7. VITAMIN D                          /00107901/ [Concomitant]
     Dosage: 50000 UNIT, UNK
  8. FOLIC ACID [Concomitant]
     Dosage: UNK
  9. ASPIRE [Concomitant]
     Dosage: 81 MG, EC

REACTIONS (2)
  - Rheumatoid arthritis [Unknown]
  - Blister [Recovering/Resolving]
